FAERS Safety Report 9361064 (Version 1)
Quarter: 2013Q2

REPORT INFORMATION
  Report Type: Spontaneous
  Country: AU (occurrence: AU)
  Receive Date: 20130621
  Receipt Date: 20130621
  Transmission Date: 20140414
  Serious: Yes (Other)
  Sender: FDA-Public Use
  Company Number: PHHY2013AU063217

PATIENT
  Age: 64 Year
  Sex: Male

DRUGS (7)
  1. GALVUMET [Suspect]
     Dosage: (1000 MG METF AND 50 MG VILD)
  2. HYDROCHLOROTHIAZIDE, IRBESARTAN [Suspect]
  3. DIAMICRON [Suspect]
  4. KARVEZIDE [Suspect]
  5. ASPIRIN [Suspect]
  6. DESVENLAFAXINE [Suspect]
  7. ROSUVASTATIN [Suspect]

REACTIONS (2)
  - Reflux gastritis [Unknown]
  - Troponin increased [Unknown]
